FAERS Safety Report 16183896 (Version 1)
Quarter: 2019Q2

REPORT INFORMATION
  Report Type: Spontaneous
  Country: CN (occurrence: CN)
  Receive Date: 20190411
  Receipt Date: 20190411
  Transmission Date: 20190711
  Serious: Yes (Other)
  Sender: FDA-Public Use
  Company Number: CN-MYLANLABS-2019M1034416

PATIENT
  Age: 56 Year
  Sex: Female
  Weight: 55 kg

DRUGS (2)
  1. SODIUM CHLORIDE. [Concomitant]
     Active Substance: SODIUM CHLORIDE
     Dosage: UNK
     Dates: start: 20190328, end: 20190328
  2. CALCITONIN SALMON MYLAN [Suspect]
     Active Substance: CALCITONIN SALMON
     Indication: OSTEOPOROSIS
     Dosage: 50 INTERNATIONAL UNIT, QD
     Route: 030
     Dates: start: 20190328, end: 20190328

REACTIONS (5)
  - Dysphoria [Recovering/Resolving]
  - Abdominal discomfort [Recovering/Resolving]
  - Flushing [Recovered/Resolved]
  - Eyelid oedema [Recovering/Resolving]
  - Nausea [Recovering/Resolving]

NARRATIVE: CASE EVENT DATE: 20190328
